FAERS Safety Report 12961573 (Version 3)
Quarter: 2016Q4

REPORT INFORMATION
  Report Type: Spontaneous
  Country: US (occurrence: US)
  Receive Date: 20161121
  Receipt Date: 20161130
  Transmission Date: 20170207
  Serious: Yes (Hospitalization)
  Sender: FDA-Public Use
  Company Number: US-BAYER-2016-220895

PATIENT
  Age: 29 Year
  Sex: Male

DRUGS (4)
  1. CORICIDIN HBP COUGH AND COLD [Interacting]
     Active Substance: CHLORPHENIRAMINE MALEATE\DEXTROMETHORPHAN HYDROBROMIDE
     Indication: NASOPHARYNGITIS
  2. DULOXETINE. [Interacting]
     Active Substance: DULOXETINE
  3. BUSPIRONE [Interacting]
     Active Substance: BUSPIRONE HYDROCHLORIDE
  4. CORICIDIN HBP COUGH AND COLD [Suspect]
     Active Substance: CHLORPHENIRAMINE MALEATE\DEXTROMETHORPHAN HYDROBROMIDE
     Indication: COUGH
     Dosage: 32 CAPSULES

REACTIONS (8)
  - Overdose [Recovering/Resolving]
  - Drug abuse [Recovering/Resolving]
  - Psychotic disorder [Recovering/Resolving]
  - Labelled drug-drug interaction medication error [Recovering/Resolving]
  - Drug interaction [None]
  - Serotonin syndrome [Recovering/Resolving]
  - Toxicity to various agents [Recovering/Resolving]
  - Drug administration error [Recovering/Resolving]
